FAERS Safety Report 9609447 (Version 1)
Quarter: 2013Q4

REPORT INFORMATION
  Report Type: Spontaneous
  Country: US (occurrence: None)
  Receive Date: 20131007
  Receipt Date: 20131007
  Transmission Date: 20140711
  Serious: Yes (Hospitalization)
  Sender: FDA-Public Use
  Company Number: None

PATIENT
  Age: 26 Year
  Sex: Male

DRUGS (1)
  1. CEFAZOLIN [Suspect]

REACTIONS (3)
  - Tachycardia [None]
  - Hypotension [None]
  - Ill-defined disorder [None]
